FAERS Safety Report 24898490 (Version 1)
Quarter: 2025Q1

REPORT INFORMATION
  Report Type: Spontaneous
  Country: RU (occurrence: RU)
  Receive Date: 20250129
  Receipt Date: 20250129
  Transmission Date: 20250409
  Serious: Yes (Hospitalization)
  Sender: JOHNSON AND JOHNSON
  Company Number: RU-MLMSERVICE-20250115-PI340118-00218-4

PATIENT
  Age: 57 Year
  Sex: Female

DRUGS (10)
  1. INFLIXIMAB [Suspect]
     Active Substance: INFLIXIMAB
     Indication: Rheumatoid arthritis
     Route: 041
  2. METHOTREXATE [Suspect]
     Active Substance: METHOTREXATE
     Indication: Rheumatoid arthritis
     Dosage: MTX DOSE TAKEN BY THE PATIENT AT THE TIME OF ADMISSION-10 MG/DAY
  3. METHOTREXATE [Suspect]
     Active Substance: METHOTREXATE
     Dosage: (INTRAMUSCULAR INJECTIONS INTO FIXED DAYS: MONDAY AND TUESDAY 10 MG
  4. FOLIC ACID [Concomitant]
     Active Substance: FOLIC ACID
     Indication: Rheumatoid arthritis
     Route: 048
  5. METFORMIN [Concomitant]
     Active Substance: METFORMIN HYDROCHLORIDE
  6. GLICLAZIDE [Concomitant]
     Active Substance: GLICLAZIDE
  7. PERINDOPRIL [Concomitant]
     Active Substance: PERINDOPRIL
  8. INDAPAMIDE [Concomitant]
     Active Substance: INDAPAMIDE
  9. AMLODIPINE [Concomitant]
     Active Substance: AMLODIPINE BESYLATE
  10. APIXABAN [Concomitant]
     Active Substance: APIXABAN

REACTIONS (6)
  - Agranulocytosis [Recovered/Resolved]
  - Iron deficiency anaemia [Recovered/Resolved]
  - Pseudomembranous colitis [Recovered/Resolved]
  - Enteritis [Recovered/Resolved]
  - Accidental overdose [Recovered/Resolved]
  - Inappropriate schedule of product administration [Unknown]
